FAERS Safety Report 5560387-3 (Version None)
Quarter: 2007Q4

REPORT INFORMATION
  Report Type: 
  Country: None (occurrence: None)
  Receive Date: 20071214
  Receipt Date: 20071101
  Transmission Date: 20080405
  Serious: No
  Sender: FDA-Public Use
  Company Number: US-ABBOTT-07P-163-0423575-00

PATIENT
  Sex: Male
  Weight: 49.94 kg

DRUGS (2)
  1. HUMIRA [Suspect]
     Indication: RHEUMATOID ARTHRITIS
     Route: 058
     Dates: start: 20070427, end: 20071030
  2. HUMIRA [Suspect]
     Route: 058
     Dates: start: 20071030

REACTIONS (1)
  - DRUG INEFFECTIVE [None]
